FAERS Safety Report 9857964 (Version 3)
Quarter: 2014Q2

REPORT INFORMATION
  Report Type: Spontaneous
  Country: US (occurrence: US)
  Receive Date: 20140131
  Receipt Date: 20140418
  Transmission Date: 20141212
  Serious: No
  Sender: FDA-Public Use
  Company Number: US-PFIZER INC-2014026830

PATIENT
  Age: 54 Year
  Sex: Female
  Weight: 58.96 kg

DRUGS (5)
  1. PREMARIN [Suspect]
     Dosage: 0.625 MG, UNK
  2. CHANTIX [Suspect]
     Indication: SMOKING CESSATION THERAPY
     Dosage: UNK
     Dates: start: 201401
  3. LEVOTHYROXINE SODIUM [Suspect]
     Indication: THYROID DISORDER
     Dosage: 200 MG, UNK
  4. METHOCARBAMOL [Suspect]
     Dosage: UNK
  5. TRAZODONE HCL [Suspect]
     Dosage: 100 MG, 1X/DAY

REACTIONS (2)
  - Dehydration [Unknown]
  - Chromaturia [Unknown]
